FAERS Safety Report 4736386-8 (Version None)
Quarter: 2005Q3

REPORT INFORMATION
  Report Type: 
  Country: None (occurrence: None)
  Receive Date: 20050808
  Receipt Date: 20050727
  Transmission Date: 20060218
  Serious: Yes (Hospitalization, Other)
  Sender: FDA-Public Use
  Company Number: JP-JNJFOC-20050800184

PATIENT
  Sex: Female
  Weight: 57 kg

DRUGS (18)
  1. REMICADE [Suspect]
     Route: 042
  2. REMICADE [Suspect]
     Route: 042
  3. REMICADE [Suspect]
     Route: 042
  4. REMICADE [Suspect]
     Route: 042
  5. REMICADE [Suspect]
     Route: 042
  6. REMICADE [Suspect]
     Route: 042
  7. REMICADE [Suspect]
     Route: 042
  8. REMICADE [Suspect]
     Route: 042
  9. REMICADE [Suspect]
     Indication: RHEUMATOID ARTHRITIS
     Route: 042
  10. PREDNISOLONE [Suspect]
     Indication: RHEUMATOID ARTHRITIS
     Route: 048
  11. METHOTREXATE [Suspect]
     Route: 048
     Dates: start: 20030101, end: 20050627
  12. METHOTREXATE [Suspect]
     Route: 048
     Dates: start: 20030101, end: 20050627
  13. METHOTREXATE [Suspect]
     Indication: RHEUMATOID ARTHRITIS
     Route: 048
     Dates: start: 20030101, end: 20050627
  14. GASTER D [Concomitant]
     Indication: PROPHYLAXIS
     Route: 048
  15. VOLTAREN [Concomitant]
     Indication: ARTHRALGIA
     Route: 048
  16. CYTOTEC [Concomitant]
     Indication: PROPHYLAXIS
     Route: 048
  17. FOSAMAC [Concomitant]
     Indication: PROPHYLAXIS
     Route: 048
  18. DEPAS [Concomitant]
     Route: 048
     Dates: start: 20030829, end: 20050627

REACTIONS (4)
  - DRUG ERUPTION [None]
  - JOINT ARTHROPLASTY [None]
  - PLATELET COUNT DECREASED [None]
  - PNEUMOCYSTIS JIROVECI PNEUMONIA [None]
